FAERS Safety Report 15180220 (Version 2)
Quarter: 2018Q4

REPORT INFORMATION
  Report Type: Report from Study
  Country: FR (occurrence: FR)
  Receive Date: 20180723
  Receipt Date: 20181106
  Transmission Date: 20190204
  Serious: Yes (Other)
  Sender: FDA-Public Use
  Company Number: FR-ACCORD-069764

PATIENT
  Age: 60 Year
  Sex: Female
  Weight: 109 kg

DRUGS (6)
  1. METHOTREXATE. [Suspect]
     Active Substance: METHOTREXATE
     Indication: PSORIASIS
     Route: 048
     Dates: start: 20150615, end: 20170719
  2. METFORMIN [Concomitant]
     Active Substance: METFORMIN HYDROCHLORIDE
     Dosage: UNK
     Dates: start: 2012
  3. INEXIUM [Concomitant]
     Active Substance: ESOMEPRAZOLE
  4. ISOPTINE [Concomitant]
     Active Substance: VERAPAMIL HYDROCHLORIDE
     Dosage: UNK
     Dates: start: 2012
  5. ENBREL [Suspect]
     Active Substance: ETANERCEPT
     Indication: PSORIASIS
     Dosage: 50 MG, WEEKLY
     Route: 058
     Dates: start: 20151020, end: 20170719
  6. DOLIPRANE [Concomitant]
     Active Substance: ACETAMINOPHEN

REACTIONS (1)
  - Bronchopneumopathy [Recovered/Resolved]

NARRATIVE: CASE EVENT DATE: 20161005
